FAERS Safety Report 19743902 (Version 1)
Quarter: 2021Q3

REPORT INFORMATION
  Report Type: Spontaneous
  Country: IN (occurrence: IN)
  Receive Date: 20210824
  Receipt Date: 20210824
  Transmission Date: 20211014
  Serious: Yes (Death, Hospitalization, Other)
  Sender: FDA-Public Use
  Company Number: IN-SETONPHARMA-2021SETLIT00030

PATIENT
  Sex: Female

DRUGS (1)
  1. PREDNISOLONE. [Suspect]
     Active Substance: PREDNISOLONE
     Indication: SYSTEMIC LUPUS ERYTHEMATOSUS
     Route: 065

REACTIONS (6)
  - Lupus pancreatitis [Unknown]
  - Pyrexia [Unknown]
  - Septic shock [Unknown]
  - Acute respiratory distress syndrome [Fatal]
  - Abdominal pain [Unknown]
  - Hypoalbuminaemia [Unknown]
